FAERS Safety Report 19352799 (Version 2)
Quarter: 2021Q2

REPORT INFORMATION
  Report Type: Report from Study
  Country: CO (occurrence: CO)
  Receive Date: 20210601
  Receipt Date: 20210611
  Transmission Date: 20210717
  Serious: Yes (Hospitalization)
  Sender: FDA-Public Use
  Company Number: CO-TAKEDA-2021TUS034312

PATIENT
  Age: 6 Year
  Sex: Female
  Weight: 21 kg

DRUGS (2)
  1. VELAGLUCERASE ALFA [Suspect]
     Active Substance: VELAGLUCERASE ALFA
     Indication: GAUCHER^S DISEASE
     Dosage: 1200 MILLIGRAM, Q2WEEKS
     Route: 065
     Dates: start: 20210108
  2. VELAGLUCERASE ALFA [Suspect]
     Active Substance: VELAGLUCERASE ALFA
     Dosage: 1200 INTERNATIONAL UNIT
     Route: 065
     Dates: start: 202101

REACTIONS (3)
  - Hypochromic anaemia [Recovered/Resolved]
  - Hepatosplenomegaly [Unknown]
  - Therapy interrupted [Unknown]

NARRATIVE: CASE EVENT DATE: 20210424
